FAERS Safety Report 9738424 (Version 2)
Quarter: 2014Q1

REPORT INFORMATION
  Report Type: Spontaneous
  Country: ME (occurrence: ME)
  Receive Date: 20131208
  Receipt Date: 20140116
  Transmission Date: 20141002
  Serious: Yes (Death)
  Sender: FDA-Public Use
  Company Number: ME-ROCHE-1314162

PATIENT
  Age: 71 Year
  Sex: Female

DRUGS (3)
  1. MIRCERA [Suspect]
     Indication: NEPHROGENIC ANAEMIA
     Route: 042
     Dates: start: 201104, end: 201311
  2. MIRCERA [Suspect]
     Indication: DIALYSIS
  3. CACO3 [Concomitant]
     Route: 065
     Dates: start: 2011

REACTIONS (1)
  - Pulmonary oedema [Fatal]
